FAERS Safety Report 9814323 (Version 3)
Quarter: 2014Q1

REPORT INFORMATION
  Report Type: Report from Study
  Country: AU (occurrence: AU)
  Receive Date: 20140113
  Receipt Date: 20140217
  Transmission Date: 20141002
  Serious: Yes (Life-Threatening, Hospitalization, Other)
  Sender: FDA-Public Use
  Company Number: PHHY2014AU002784

PATIENT
  Age: 71 Year
  Sex: Female

DRUGS (1)
  1. SANDOSTATIN LAR [Suspect]
     Indication: CARCINOID SYNDROME
     Dosage: 10 MG
     Route: 030

REACTIONS (5)
  - Blood potassium decreased [Recovering/Resolving]
  - Blood magnesium decreased [Recovering/Resolving]
  - Carcinoid tumour pulmonary [Unknown]
  - Blood corticotrophin abnormal [Unknown]
  - Metabolic disorder [Unknown]
